FAERS Safety Report 17058282 (Version 2)
Quarter: 2019Q4

REPORT INFORMATION
  Report Type: Spontaneous
  Country: US (occurrence: US)
  Receive Date: 20191121
  Receipt Date: 20191126
  Transmission Date: 20200122
  Serious: Yes (Other)
  Sender: FDA-Public Use
  Company Number: US-PFIZER INC-2019501524

PATIENT
  Age: 48 Year
  Sex: Female

DRUGS (4)
  1. LUGOLS IODINE [Concomitant]
     Active Substance: IODINE\POTASSIUM IODIDE
     Dosage: UNK, 3X/DAY (10 DROPS TID)
  2. METHIMAZOLE. [Suspect]
     Active Substance: METHIMAZOLE
     Indication: THYROTOXIC CRISIS
     Dosage: 60 MG, 2X/DAY (LIMITING THE CONTINUATION OF MAXIMUM DOSES OF MMI)
  3. AMIODARONE [Concomitant]
     Active Substance: AMIODARONE
     Indication: SUPRAVENTRICULAR TACHYCARDIA
     Dosage: UNK
     Route: 042
  4. HYDROCORTISONE. [Concomitant]
     Active Substance: HYDROCORTISONE
     Dosage: 100 MG, 3X/DAY
     Route: 042

REACTIONS (1)
  - Ischaemic hepatitis [Unknown]
